FAERS Safety Report 23593030 (Version 3)
Quarter: 2024Q1

REPORT INFORMATION
  Report Type: Spontaneous
  Country: ES (occurrence: ES)
  Receive Date: 20240304
  Receipt Date: 20240314
  Transmission Date: 20240410
  Serious: Yes (Death, Other)
  Sender: FDA-Public Use
  Company Number: ES-HORIZON THERAPEUTICS-HZN-2024-002436

PATIENT

DRUGS (2)
  1. UPLIZNA [Suspect]
     Active Substance: INEBILIZUMAB-CDON
     Indication: Product used for unknown indication
     Dosage: FIRST DOSE, 100 MG, SOLUTION FOR INJECTION
     Route: 042
     Dates: start: 202311
  2. UPLIZNA [Suspect]
     Active Substance: INEBILIZUMAB-CDON
     Dosage: SECOND INFUSION, 100 MG, SOLUTION FOR INJECTION
     Route: 042
     Dates: start: 202312

REACTIONS (3)
  - Completed suicide [Fatal]
  - Suicidal ideation [Unknown]
  - Spousal abuse [Unknown]

NARRATIVE: CASE EVENT DATE: 20240101
